FAERS Safety Report 9669432 (Version 3)
Quarter: 2014Q1

REPORT INFORMATION
  Report Type: Spontaneous
  Country: FR (occurrence: None)
  Receive Date: 20131101
  Receipt Date: 20140305
  Transmission Date: 20141002
  Serious: Yes (Hospitalization, Disabling)
  Sender: FDA-Public Use
  Company Number: AXC-2013-000566

PATIENT
  Age: 39 Year
  Sex: Female
  Weight: 63 kg

DRUGS (4)
  1. PYLERA [Suspect]
     Indication: HELICOBACTER INFECTION
     Dosage: 3DF,QID,ORAL.
     Route: 048
     Dates: start: 20130911, end: 20130919
  2. XANAX (ALPRAZOLAM) [Concomitant]
  3. PENTASA (MESALAZINE) [Concomitant]
  4. ESOMEPRAZOLE (ESOMEPRAZOLE) [Concomitant]

REACTIONS (12)
  - Delirium [None]
  - Anxiety [None]
  - Abnormal behaviour [None]
  - Hallucination [None]
  - Logorrhoea [None]
  - Agitation [None]
  - Impaired work ability [None]
  - Paranoia [None]
  - Sleep disorder [None]
  - Confusional state [None]
  - Affective disorder [None]
  - Disturbance in attention [None]
